FAERS Safety Report 11211547 (Version 3)
Quarter: 2015Q4

REPORT INFORMATION
  Report Type: Spontaneous
  Country: DE (occurrence: DE)
  Receive Date: 20150623
  Receipt Date: 20151116
  Transmission Date: 20160304
  Serious: Yes (Death, Life-Threatening)
  Sender: FDA-Public Use
  Company Number: DE-BAYER-2015-351219

PATIENT
  Age: 34 Year
  Sex: Male
  Weight: 105 kg

DRUGS (6)
  1. KALYMIN [PYRIDOSTIGMINE BROMIDE] [Concomitant]
     Indication: IMPAIRED GASTRIC EMPTYING
     Dosage: 10 MG, UNK
     Route: 042
     Dates: start: 20150514, end: 20150522
  2. MANNITOL. [Concomitant]
     Active Substance: MANNITOL
     Indication: INTRACRANIAL PRESSURE INCREASED
     Dosage: 125 ML, UNK
     Route: 042
     Dates: start: 20150514, end: 20150522
  3. RANITIDINE [Suspect]
     Active Substance: RANITIDINE\RANITIDINE HYDROCHLORIDE
     Indication: PROPHYLAXIS
     Dosage: 50 MG, UNK
     Route: 042
     Dates: start: 20150514, end: 20150522
  4. LIQUEMIN [Concomitant]
     Active Substance: HEPARIN SODIUM
     Indication: THROMBOSIS PROPHYLAXIS
     Dosage: UNK
     Route: 042
     Dates: start: 20150515, end: 20150522
  5. AVALOX [Suspect]
     Active Substance: MOXIFLOXACIN HYDROCHLORIDE
     Indication: PNEUMONIA
     Dosage: 400 MG, QD
     Route: 042
     Dates: start: 20150518, end: 20150522
  6. CEFOTAXIME [Concomitant]
     Active Substance: CEFOTAXIME SODIUM
     Dosage: 2 G, TID
     Dates: start: 20150522, end: 20150522

REACTIONS (2)
  - Arrhythmia [Fatal]
  - Cardiac death [Fatal]

NARRATIVE: CASE EVENT DATE: 20150522
